FAERS Safety Report 24977944 (Version 2)
Quarter: 2025Q1

REPORT INFORMATION
  Report Type: Spontaneous
  Country: JP (occurrence: JP)
  Receive Date: 20250217
  Receipt Date: 20250327
  Transmission Date: 20250409
  Serious: Yes (Other)
  Sender: PFIZER
  Company Number: JP-PFIZER INC-PV202400154768

PATIENT
  Age: 76 Year
  Sex: Male
  Weight: 70 kg

DRUGS (28)
  1. ELREXFIO [Suspect]
     Active Substance: ELRANATAMAB-BCMM
     Indication: Plasma cell myeloma
     Route: 058
     Dates: start: 20241106
  2. ELREXFIO [Suspect]
     Active Substance: ELRANATAMAB-BCMM
     Route: 058
     Dates: start: 20241109
  3. ELREXFIO [Suspect]
     Active Substance: ELRANATAMAB-BCMM
     Route: 058
     Dates: start: 20241115
  4. LEVOFLOXACIN [Concomitant]
     Active Substance: LEVOFLOXACIN
     Indication: Premedication
     Dosage: 500 MG, 1X/DAY
  5. CALONAL [Concomitant]
     Active Substance: ACETAMINOPHEN
     Indication: Premedication
     Dosage: 3 TABLETS AT ONCE, BEFORE ELREXFIO ADMINISTRATION, AFTER BREAKFAST FOR 1 DAY
     Route: 048
     Dates: start: 20241105, end: 20241105
  6. LORATADINE [Concomitant]
     Active Substance: LORATADINE
     Indication: Premedication
  7. LORATADINE [Concomitant]
     Active Substance: LORATADINE
     Dosage: 1 TABLET AT ONCE, BEFORE ELREXFIO ADMINISTRATION, AFTER BREAKFAST FOR 1 DAY
     Route: 048
     Dates: start: 20241105, end: 20241105
  8. LORATADINE [Concomitant]
     Active Substance: LORATADINE
     Dosage: 1 TABLET AT ONCE BEFORE GOING TO BED FOR 10 DAYS
     Route: 048
     Dates: start: 20241105
  9. LENADEX [Concomitant]
     Active Substance: DEXAMETHASONE ACETATE
     Indication: Premedication
     Dosage: 5 TABLETS AT ONCE, BEFORE ELREXFIO ADMINISTRATION, AFTER BREAKFAST FOR 1 DAY
     Route: 048
     Dates: start: 20241105, end: 20241105
  10. NIFEDIPINE [Concomitant]
     Active Substance: NIFEDIPINE
  11. NIFEDIPINE [Concomitant]
     Active Substance: NIFEDIPINE
     Dosage: 2 TABLETS AT ONCE, AFTER BREAKFAST FOR 4 DAYS
     Route: 048
     Dates: start: 20241106
  12. FAMOTIDINE [Concomitant]
     Active Substance: FAMOTIDINE
     Indication: Premedication
  13. FAMOTIDINE [Concomitant]
     Active Substance: FAMOTIDINE
     Dosage: 1 TABLET AT ONCE, AFTER BREAKFAST FOR 10 DAYS
     Route: 048
     Dates: start: 20241106
  14. ZOVIRAX [Concomitant]
     Active Substance: ACYCLOVIR
     Indication: Premedication
  15. ZOVIRAX [Concomitant]
     Active Substance: ACYCLOVIR
     Dosage: 1 TABLET AT ONCE, AFTER BREAKFAST FOR 3 DAYS
     Route: 048
     Dates: start: 20241106
  16. MIROGABALIN BESYLATE [Concomitant]
     Active Substance: MIROGABALIN BESYLATE
  17. MIROGABALIN BESYLATE [Concomitant]
     Active Substance: MIROGABALIN BESYLATE
     Dosage: 0.5 TABLET AT ONCE, TWICE A DAY FOR 10 DAYS, AFTER BREAKFAST AND BEFORE GOING TO BED
     Route: 048
     Dates: start: 20241105
  18. NOVORAPID [Concomitant]
     Active Substance: INSULIN ASPART
  19. NOVORAPID [Concomitant]
     Active Substance: INSULIN ASPART
     Dosage: 3IU IN THE MORNING, 7IU AT NOON, 11IU AT EVENING
     Dates: start: 20241105
  20. INSULIN GLARGINE [Concomitant]
     Active Substance: INSULIN GLARGINE
  21. INSULIN GLARGINE [Concomitant]
     Active Substance: INSULIN GLARGINE
     Dosage: 14 IU BEFORE GOING TO BED
     Dates: start: 20241105
  22. LOXOPROFEN SODIUM [Concomitant]
     Active Substance: LOXOPROFEN SODIUM
  23. LOXOPROFEN SODIUM [Concomitant]
     Active Substance: LOXOPROFEN SODIUM
     Dosage: 1 TABLET AT ONCE, AFTER BREAKFAST FOR 5 DAYS
     Route: 048
     Dates: start: 20241106
  24. DEXAMETHASONE [Concomitant]
     Active Substance: DEXAMETHASONE
     Indication: Premedication
     Dates: start: 202411, end: 202411
  25. DEXAMETHASONE [Concomitant]
     Active Substance: DEXAMETHASONE
     Dates: start: 202411, end: 202411
  26. DEXAMETHASONE [Concomitant]
     Active Substance: DEXAMETHASONE
     Dates: start: 202411, end: 202411
  27. DEXAMETHASONE [Concomitant]
     Active Substance: DEXAMETHASONE
     Dates: start: 202411, end: 202411
  28. DEXAMETHASONE [Concomitant]
     Active Substance: DEXAMETHASONE
     Dates: start: 202412, end: 202412

REACTIONS (7)
  - Hypogammaglobulinaemia [Recovered/Resolved]
  - Condition aggravated [Recovered/Resolved]
  - C-reactive protein increased [Recovered/Resolved]
  - Cytomegalovirus test positive [Recovered/Resolved]
  - Pyrexia [Recovered/Resolved]
  - Cytomegalovirus infection [Recovered/Resolved]
  - Malaise [Recovering/Resolving]

NARRATIVE: CASE EVENT DATE: 20241101
